FAERS Safety Report 4732442-9 (Version None)
Quarter: 2005Q3

REPORT INFORMATION
  Report Type: 
  Country: None (occurrence: None)
  Receive Date: 20050801
  Receipt Date: 20050720
  Transmission Date: 20060218
  Serious: Yes (Hospitalization)
  Sender: FDA-Public Use
  Company Number: MK200507-0207-1

PATIENT
  Age: 69 Year
  Sex: Male

DRUGS (3)
  1. TOFRANIL [Suspect]
     Indication: DEPRESSION
     Dosage: 50 MG, BID, PO
     Route: 048
     Dates: start: 19560101
  2. LEVOXYL [Suspect]
     Indication: HYPOTHYROIDISM
     Dosage: 50 UG, Q D, PO
     Route: 048
     Dates: start: 20040701
  3. CHLORPROMAZINE HCL [Concomitant]

REACTIONS (5)
  - DIZZINESS [None]
  - FALL [None]
  - HEAD INJURY [None]
  - SKIN LACERATION [None]
  - SYNCOPE [None]
